FAERS Safety Report 5003539-3 (Version None)
Quarter: 2006Q2

REPORT INFORMATION
  Report Type: 
  Country: None (occurrence: None)
  Receive Date: 20060511
  Receipt Date: 20060419
  Transmission Date: 20061013
  Serious: Yes (Hospitalization)
  Sender: FDA-Public Use
  Company Number: GBR-2006-0002241

PATIENT
  Age: 75 Year
  Sex: Female

DRUGS (3)
  1. OXYCONTIN [Suspect]
     Indication: SCIATICA
     Dosage: SEE IMAGE, ORAL
     Route: 048
     Dates: start: 20060416, end: 20060417
  2. OXYCONTIN [Suspect]
     Indication: SCIATICA
     Dosage: SEE IMAGE, ORAL
     Route: 048
     Dates: start: 20060417
  3. OXYNORM (OXYCODONE HYDROCHLORIDE) [Suspect]
     Indication: SCIATICA
     Dosage: ORAL
     Route: 048
     Dates: start: 20060416

REACTIONS (3)
  - DISORIENTATION [None]
  - NAUSEA [None]
  - SOMNOLENCE [None]
